FAERS Safety Report 20200706 (Version 1)
Quarter: 2021Q4

REPORT INFORMATION
  Report Type: Spontaneous
  Country: US (occurrence: US)
  Receive Date: 20211217
  Receipt Date: 20211217
  Transmission Date: 20220303
  Serious: Yes (Other)
  Sender: FDA-Public Use
  Company Number: US-GW PHARMA-202112USGW06159

PATIENT

DRUGS (1)
  1. EPIDIOLEX [Suspect]
     Active Substance: CANNABIDIOL
     Indication: Seizure
     Dosage: 400 MILLIGRAM, BID
     Dates: start: 202102

REACTIONS (7)
  - Lung disorder [Unknown]
  - COVID-19 [Unknown]
  - Loss of consciousness [Recovered/Resolved]
  - Seizure [Unknown]
  - Pneumonia [Unknown]
  - Hospice care [Unknown]
  - Therapeutic product effect incomplete [Unknown]

NARRATIVE: CASE EVENT DATE: 20210101
